FAERS Safety Report 8089863 (Version 3)
Quarter: 2013Q4

REPORT INFORMATION
  Report Type: Spontaneous
  Country: US (occurrence: US)
  Receive Date: 20110815
  Receipt Date: 20131003
  Transmission Date: 20140711
  Serious: Yes (Hospitalization, Other)
  Sender: FDA-Public Use
  Company Number: US-ROCHE-791177

PATIENT
  Age: 42 Year
  Sex: Male
  Weight: 81.72 kg

DRUGS (5)
  1. ACCUTANE [Suspect]
     Indication: ACNE
     Route: 065
     Dates: start: 1997, end: 1998
  2. SOTRET [Suspect]
     Indication: ACNE
     Route: 065
  3. AMNESTEEM [Suspect]
     Indication: ACNE
     Route: 065
  4. CLARAVIS [Suspect]
     Indication: ACNE
     Route: 065
  5. ASPIRIN [Concomitant]

REACTIONS (8)
  - Crohn^s disease [Unknown]
  - Inflammatory bowel disease [Unknown]
  - Anxiety [Unknown]
  - Intestinal obstruction [Unknown]
  - Fistula [Unknown]
  - Intestinal haemorrhage [Unknown]
  - Depression [Unknown]
  - Irritable bowel syndrome [Unknown]
